FAERS Safety Report 11094948 (Version 6)
Quarter: 2015Q4

REPORT INFORMATION
  Report Type: Spontaneous
  Country: US (occurrence: US)
  Receive Date: 20150506
  Receipt Date: 20151006
  Transmission Date: 20160304
  Serious: Yes (Hospitalization, Disabling, Other)
  Sender: FDA-Public Use
  Company Number: US-009507513-1201USA01164

PATIENT
  Sex: Female
  Weight: 79.37 kg

DRUGS (6)
  1. ALENDRONATE SODIUM. [Suspect]
     Active Substance: ALENDRONATE SODIUM
     Indication: BONE LOSS
     Dosage: 70 MG, QW
     Route: 048
     Dates: start: 20040115, end: 20100224
  2. VITAMIN E [Concomitant]
     Active Substance: .ALPHA.-TOCOPHEROL
     Indication: ROUTINE HEALTH MAINTENANCE
     Dosage: UNK
     Route: 065
     Dates: start: 1985
  3. VITAMINS (UNSPECIFIED) [Concomitant]
     Active Substance: VITAMINS
     Indication: ROUTINE HEALTH MAINTENANCE
     Dosage: UNK
     Route: 065
     Dates: start: 1985
  4. ALENDRONATE SODIUM. [Suspect]
     Active Substance: ALENDRONATE SODIUM
     Indication: BONE LOSS
     Dosage: 70 MG, QW
     Route: 048
  5. PRILOSEC [Concomitant]
     Active Substance: OMEPRAZOLE MAGNESIUM
     Indication: GASTROOESOPHAGEAL REFLUX DISEASE
     Dosage: UNK
     Route: 065
     Dates: start: 1980
  6. FOSAMAX [Suspect]
     Active Substance: ALENDRONATE SODIUM
     Indication: BONE LOSS
     Dosage: 70 MG, QW
     Route: 048
     Dates: start: 2002, end: 20100224

REACTIONS (45)
  - Femur fracture [Recovered/Resolved]
  - Irritable bowel syndrome [Unknown]
  - Dermabrasion [Unknown]
  - Balance disorder [Unknown]
  - Anxiety [Recovering/Resolving]
  - Fear [Recovering/Resolving]
  - Biopsy lung [Unknown]
  - Scoliosis [Unknown]
  - Craniocerebral injury [Unknown]
  - Contusion [Unknown]
  - Pulmonary embolism [Unknown]
  - Low turnover osteopathy [Unknown]
  - Tooth loss [Unknown]
  - Type 2 diabetes mellitus [Not Recovered/Not Resolved]
  - Optic neuritis [Unknown]
  - Dyslipidaemia [Unknown]
  - Fall [Unknown]
  - Deep vein thrombosis [Unknown]
  - Interstitial lung disease [Not Recovered/Not Resolved]
  - Bronchial hyperreactivity [Unknown]
  - Fall [Unknown]
  - Intramedullary rod insertion [Unknown]
  - Bone loss [Unknown]
  - Anaemia [Unknown]
  - Spinal pain [Unknown]
  - Asthma [Unknown]
  - Type V hyperlipidaemia [Unknown]
  - Vena cava filter insertion [Unknown]
  - Rosacea [Unknown]
  - Deep vein thrombosis [Unknown]
  - Bursitis [Recovering/Resolving]
  - Intervertebral disc degeneration [Unknown]
  - Osteoarthritis [Unknown]
  - Vascular calcification [Unknown]
  - Muscle strain [Unknown]
  - Deep vein thrombosis [Not Recovered/Not Resolved]
  - Depression [Recovering/Resolving]
  - Essential hypertension [Not Recovered/Not Resolved]
  - Organising pneumonia [Unknown]
  - Back pain [Not Recovered/Not Resolved]
  - Anaemia postoperative [Unknown]
  - Musculoskeletal stiffness [Unknown]
  - Calculus urinary [Recovered/Resolved]
  - Biopsy breast [Unknown]
  - Cardiac murmur [Unknown]

NARRATIVE: CASE EVENT DATE: 2002
